FAERS Safety Report 7555727 (Version 9)
Quarter: 2015Q2

REPORT INFORMATION
  Report Type: Report from Study
  Country: US (occurrence: US)
  Receive Date: 20100827
  Receipt Date: 20150413
  Transmission Date: 20150821
  Serious: Yes (Hospitalization)
  Sender: FDA-Public Use
  Company Number: US-BIOGENIDEC-2010BI028918

PATIENT
  Age: 56 Year
  Sex: Female

DRUGS (3)
  1. COPAXONE [Concomitant]
     Active Substance: GLATIRAMER ACETATE
     Indication: MULTIPLE SCLEROSIS
  2. SOLU-MEDROL [Concomitant]
     Active Substance: METHYLPREDNISOLONE SODIUM SUCCINATE
     Indication: MULTIPLE SCLEROSIS
  3. AVONEX [Suspect]
     Active Substance: INTERFERON BETA-1A
     Indication: MULTIPLE SCLEROSIS
     Route: 030
     Dates: start: 20081221, end: 20110104

REACTIONS (17)
  - Myocardial necrosis marker increased [Recovered/Resolved]
  - Troponin increased [Unknown]
  - Influenza like illness [Unknown]
  - Muscular weakness [Recovered/Resolved]
  - Muscle spasticity [Unknown]
  - Pleural effusion [Unknown]
  - Oral herpes [Not Recovered/Not Resolved]
  - Multiple sclerosis [Recovered/Resolved]
  - Vision blurred [Recovered/Resolved]
  - Pyrexia [Unknown]
  - Pericardial effusion [Recovered/Resolved]
  - Hypoaesthesia [Unknown]
  - Left ventricular hypertrophy [Recovered/Resolved]
  - Muscle enzyme increased [Recovered/Resolved]
  - Headache [Recovered/Resolved]
  - Dilatation ventricular [Recovered/Resolved]
  - Gait disturbance [Unknown]

NARRATIVE: CASE EVENT DATE: 2009
